FAERS Safety Report 12557479 (Version 30)
Quarter: 2018Q2

REPORT INFORMATION
  Report Type: Spontaneous
  Country: US (occurrence: US)
  Receive Date: 20160714
  Receipt Date: 20180626
  Transmission Date: 20180711
  Serious: Yes (Hospitalization, Other)
  Sender: FDA-Public Use
  Company Number: US-PFIZER INC-2016331976

PATIENT
  Age: 70 Year
  Sex: Female
  Weight: 54 kg

DRUGS (30)
  1. XELJANZ [Suspect]
     Active Substance: TOFACITINIB CITRATE
     Dosage: 5 MG, UNK
     Route: 048
  2. MINOCYCLINE [Concomitant]
     Active Substance: MINOCYCLINE\MINOCYCLINE HYDROCHLORIDE
     Dosage: 100
  3. TEGRETOL [Concomitant]
     Active Substance: CARBAMAZEPINE
     Dosage: UNK
  4. CIMZIA [Concomitant]
     Active Substance: CERTOLIZUMAB PEGOL
     Indication: RHEUMATOID ARTHRITIS
     Dosage: UNK
  5. SUPER 3B [Concomitant]
     Dosage: UNK UNK, DAILY (2 A DAY)
  6. XELJANZ [Suspect]
     Active Substance: TOFACITINIB CITRATE
     Dosage: 5 MG, UNK
     Route: 048
  7. AZATHIOPRINE. [Concomitant]
     Active Substance: AZATHIOPRINE
     Dosage: 50 MG, UNK
  8. ORENCIA [Concomitant]
     Active Substance: ABATACEPT
     Dosage: UNK
  9. XELJANZ [Suspect]
     Active Substance: TOFACITINIB CITRATE
     Dosage: 5 MG, 2X/DAY (ONE IN THE MORNING AND ONE AT NIGHT)
     Route: 048
  10. NEURONTIN [Concomitant]
     Active Substance: GABAPENTIN
     Dosage: 100 MG, UNK
  11. HUMIRA [Concomitant]
     Active Substance: ADALIMUMAB
     Dosage: UNK
  12. VITAMIN A [Concomitant]
     Active Substance: VITAMIN A
     Indication: METABOLIC DISORDER
  13. XELJANZ [Suspect]
     Active Substance: TOFACITINIB CITRATE
     Indication: RHEUMATOID ARTHRITIS
     Dosage: 5 MG, TWICE A DAY
     Route: 048
  14. CLINDAMYCIN. [Concomitant]
     Active Substance: CLINDAMYCIN
     Dosage: 150 MG, UNK
  15. ERYTHROMYCIN. [Concomitant]
     Active Substance: ERYTHROMYCIN
     Dosage: UNK
  16. BAYER ASPIRIN [Concomitant]
     Active Substance: ASPIRIN
     Indication: BLOOD CHOLESTEROL ABNORMAL
     Dosage: 87 MG, DAILY
  17. BAYER ASPIRIN [Concomitant]
     Active Substance: ASPIRIN
     Indication: PAIN
  18. BAYER ASPIRIN [Concomitant]
     Active Substance: ASPIRIN
     Indication: CARDIAC DISORDER
  19. XELJANZ [Suspect]
     Active Substance: TOFACITINIB CITRATE
     Dosage: 5 MG, UNK
     Route: 048
  20. KETEK [Concomitant]
     Active Substance: TELITHROMYCIN
     Dosage: UNK
  21. METHOTREXATE. [Concomitant]
     Active Substance: METHOTREXATE
     Dosage: UNK
  22. REMICADE [Concomitant]
     Active Substance: INFLIXIMAB
     Dosage: UNK
  23. PREDNISONE. [Concomitant]
     Active Substance: PREDNISONE
     Dosage: 5 MG, UNK
     Dates: end: 201801
  24. VITAMIN A [Concomitant]
     Active Substance: VITAMIN A
     Indication: IMMUNE ENHANCEMENT THERAPY
     Dosage: UNK UNK, DAILY (2 A DAY)
  25. XELJANZ [Suspect]
     Active Substance: TOFACITINIB CITRATE
     Dosage: 5 MG, TWICE A DAY
     Route: 048
  26. XELJANZ [Suspect]
     Active Substance: TOFACITINIB CITRATE
     Dosage: 5 MG, TWICE A DAY
     Route: 048
     Dates: start: 2014
  27. DILANTIN [Concomitant]
     Active Substance: PHENYTOIN
     Dosage: UNK
  28. AZITHROMYCIN ANHYDROUS. [Concomitant]
     Active Substance: AZITHROMYCIN ANHYDROUS
     Dosage: 250 MG, UNK
  29. PREDNISONE. [Concomitant]
     Active Substance: PREDNISONE
     Indication: PAIN
     Dosage: 10 MG, UNK
     Dates: start: 201712
  30. TYLENOL EXTRA STRENGTH [Concomitant]
     Active Substance: ACETAMINOPHEN
     Indication: PAIN
     Dosage: 500 MG, UNK

REACTIONS (43)
  - Drug dispensing error [Unknown]
  - Medication error [Unknown]
  - Upper respiratory tract congestion [Unknown]
  - Oropharyngeal pain [Unknown]
  - Vision blurred [Not Recovered/Not Resolved]
  - Drug hypersensitivity [Unknown]
  - Ocular hyperaemia [Unknown]
  - Condition aggravated [Unknown]
  - Dysphonia [Not Recovered/Not Resolved]
  - Lung disorder [Unknown]
  - Cough [Not Recovered/Not Resolved]
  - Nasal congestion [Not Recovered/Not Resolved]
  - Increased upper airway secretion [Unknown]
  - Dermatitis allergic [Unknown]
  - Stomatitis [Recovering/Resolving]
  - Urinary tract infection [Unknown]
  - Periorbital oedema [Unknown]
  - Insomnia [Unknown]
  - Pharyngeal erythema [Unknown]
  - Eye discharge [Unknown]
  - Sinus congestion [Unknown]
  - Peripheral swelling [Unknown]
  - Sinus disorder [Not Recovered/Not Resolved]
  - Drug ineffective [Unknown]
  - Influenza [Unknown]
  - Immune system disorder [Unknown]
  - Pain in extremity [Not Recovered/Not Resolved]
  - Blood cholesterol increased [Recovering/Resolving]
  - Eye pruritus [Unknown]
  - Pain [Not Recovered/Not Resolved]
  - Gait inability [Unknown]
  - Pharyngeal disorder [Unknown]
  - Throat irritation [Unknown]
  - Respiratory tract infection [Recovered/Resolved]
  - Throat irritation [Not Recovered/Not Resolved]
  - Pharyngeal inflammation [Unknown]
  - Drug dose omission [Unknown]
  - Blood pressure increased [Not Recovered/Not Resolved]
  - Discomfort [Unknown]
  - Stress [Unknown]
  - Spinal pain [Unknown]
  - Arthralgia [Not Recovered/Not Resolved]
  - Oral mucosal exfoliation [Recovering/Resolving]

NARRATIVE: CASE EVENT DATE: 2015
